FAERS Safety Report 5379648-6 (Version None)
Quarter: 2007Q3

REPORT INFORMATION
  Report Type: 
  Country: None (occurrence: None)
  Receive Date: 20070706
  Receipt Date: 20070626
  Transmission Date: 20080115
  Serious: Yes (Other)
  Sender: FDA-Public Use
  Company Number: PHBS2007JP10943

PATIENT

DRUGS (2)
  1. NEORAL [Suspect]
     Indication: BEHCET'S SYNDROME
     Route: 048
  2. PREDNISOLONE [Concomitant]
     Route: 065

REACTIONS (1)
  - OSTEOPOROSIS [None]
